FAERS Safety Report 8921692 (Version 2)
Quarter: 2013Q1

REPORT INFORMATION
  Report Type: Spontaneous
  Country: US (occurrence: US)
  Receive Date: 20121121
  Receipt Date: 20130206
  Transmission Date: 20140127
  Serious: Yes (Hospitalization)
  Sender: FDA-Public Use
  Company Number: US-JNJFOC-20121109561

PATIENT
  Age: 32 None
  Sex: Female

DRUGS (2)
  1. XARELTO [Suspect]
     Indication: DEEP VEIN THROMBOSIS
     Route: 048
     Dates: start: 20121113, end: 201211
  2. NSAID [Suspect]
     Indication: PRODUCT USED FOR UNKNOWN INDICATION
     Dates: end: 20121112

REACTIONS (3)
  - Haemorrhage [Recovered/Resolved]
  - Injury [Recovered/Resolved]
  - International normalised ratio increased [Recovered/Resolved]
